FAERS Safety Report 8836901 (Version 1)
Quarter: 2012Q4

REPORT INFORMATION
  Report Type: 
  Country: US (occurrence: US)
  Receive Date: 20121012
  Receipt Date: 20121012
  Transmission Date: 20130627
  Serious: Yes (Other)
  Sender: FDA-Public Use
  Company Number: US-PFIZER INC-2012252305

PATIENT
  Age: 45 Year
  Sex: Female
  Weight: 61.22 kg

DRUGS (1)
  1. NEURONTIN [Suspect]
     Indication: PERIPHERAL NERVE INJURY
     Dosage: 600 mg, 2x/day
     Dates: start: 2012

REACTIONS (4)
  - Hysterectomy [Unknown]
  - Pain [Unknown]
  - Anxiety [Unknown]
  - Flatulence [Unknown]
